FAERS Safety Report 6735863-8 (Version None)
Quarter: 2010Q2

REPORT INFORMATION
  Report Type: 
  Country: None (occurrence: None)
  Receive Date: 20100521
  Receipt Date: 20100519
  Transmission Date: 20101027
  Serious: Yes (Death)
  Sender: FDA-Public Use
  Company Number: A0857337A

PATIENT
  Sex: Male

DRUGS (2)
  1. LOVAZA [Suspect]
     Indication: DRUG USE FOR UNKNOWN INDICATION
     Dosage: 1G UNKNOWN
     Route: 048
  2. VENTOLIN HFA [Suspect]
     Indication: DRUG USE FOR UNKNOWN INDICATION
     Dosage: 90MCG UNKNOWN
     Route: 055

REACTIONS (1)
  - DEATH [None]
